FAERS Safety Report 6730164-6 (Version None)
Quarter: 2010Q2

REPORT INFORMATION
  Report Type: 
  Country: None (occurrence: None)
  Receive Date: 20100518
  Receipt Date: 20100507
  Transmission Date: 20101027
  Serious: Yes (Hospitalization)
  Sender: FDA-Public Use
  Company Number: CN-ELI_LILLY_AND_COMPANY-CN201005001988

PATIENT
  Sex: Male
  Weight: 66.5 kg

DRUGS (6)
  1. PEMETREXED [Suspect]
     Indication: NON-SMALL CELL LUNG CANCER STAGE III
     Dosage: 500 MG, EVERY 21 DAYS
     Route: 042
     Dates: start: 20091214
  2. CISPLATIN [Suspect]
     Indication: NON-SMALL CELL LUNG CANCER STAGE III
     Dosage: 750 MG/M2, EVERY 21 DAYS
     Route: 042
     Dates: start: 20091214
  3. RADIATION [Suspect]
     Indication: NON-SMALL CELL LUNG CANCER STAGE III
     Dosage: 60 GY/30F
     Dates: start: 20091214
  4. FOLIC ACID [Concomitant]
     Indication: PROPHYLAXIS
  5. VITAMIN B-12 [Concomitant]
     Indication: PROPHYLAXIS
  6. DEXAMETHASONE [Concomitant]
     Indication: PROPHYLAXIS

REACTIONS (2)
  - HYPOXIA [None]
  - PNEUMONITIS [None]
